FAERS Safety Report 15408203 (Version 4)
Quarter: 2020Q3

REPORT INFORMATION
  Report Type: Report from Study
  Country: PL (occurrence: PL)
  Receive Date: 20180920
  Receipt Date: 20190301
  Transmission Date: 20201104
  Serious: Yes (Hospitalization)
  Sender: FDA-Public Use
  Company Number: PL-JNJFOC-20180914226

PATIENT
  Age: 66 Year
  Sex: Female

DRUGS (20)
  1. AUGMENTIN [Concomitant]
     Active Substance: AMOXICILLIN\CLAVULANATE POTASSIUM
     Indication: ACUTE SINUSITIS
     Route: 048
     Dates: start: 20180614, end: 20180625
  2. IBRUTINIB [Suspect]
     Active Substance: IBRUTINIB
     Route: 048
  3. RANIGAST [Concomitant]
     Indication: GASTROINTESTINAL DISORDER THERAPY
     Route: 048
     Dates: start: 20180823, end: 20180906
  4. IBRUTINIB [Suspect]
     Active Substance: IBRUTINIB
     Indication: B-CELL LYMPHOMA
     Dosage: 560 (UNITS UNSPECIFIED)
     Route: 048
     Dates: start: 20180521, end: 20180909
  5. CAPTOPRIL. [Concomitant]
     Active Substance: CAPTOPRIL
     Indication: HYPERTENSION
     Route: 060
     Dates: start: 2016
  6. FLUCONAZOLE. [Concomitant]
     Active Substance: FLUCONAZOLE
     Indication: ORAL FUNGAL INFECTION
     Route: 048
     Dates: start: 20180827, end: 20180902
  7. ETHINYLESTRADIOL W/LEVONORGESTREL [Suspect]
     Active Substance: ETHINYL ESTRADIOL\LEVONORGESTREL
     Indication: B-CELL LYMPHOMA
     Route: 048
     Dates: start: 20180514, end: 20180604
  8. BUPROPION. [Suspect]
     Active Substance: BUPROPION
     Indication: B-CELL LYMPHOMA
     Dosage: 75 (UNITS UNSPECIFIED)
     Route: 048
     Dates: start: 20180516, end: 20180606
  9. PERFALGAN [Concomitant]
     Active Substance: ACETAMINOPHEN
     Indication: FALL
     Route: 065
     Dates: start: 20180817, end: 20180822
  10. KALIPOZ [Concomitant]
     Active Substance: POTASSIUM CHLORIDE
     Indication: PROPHYLAXIS
     Route: 048
     Dates: start: 20180823, end: 20180906
  11. POLTRAM [Concomitant]
     Active Substance: TRAMADOL HYDROCHLORIDE
     Indication: FALL
     Route: 048
     Dates: start: 20180823, end: 20180906
  12. TRITACE [Concomitant]
     Active Substance: RAMIPRIL
     Indication: HYPERTENSION
     Route: 048
     Dates: start: 20180528
  13. BIBLOC [Concomitant]
     Active Substance: BISOPROLOL
     Indication: SINUS TACHYCARDIA
     Route: 048
     Dates: start: 20180528
  14. POTASSIUM CHLORIDE. [Concomitant]
     Active Substance: POTASSIUM CHLORIDE
     Indication: HYPOKALAEMIA
     Route: 065
     Dates: start: 20180817, end: 20180822
  15. GLYCEROL [Concomitant]
     Active Substance: GLYCERIN
     Indication: CONSTIPATION PROPHYLAXIS
     Route: 054
     Dates: start: 20180817, end: 20180822
  16. MIDAZOLAM HYDROCHLORIDE. [Suspect]
     Active Substance: MIDAZOLAM HYDROCHLORIDE
     Indication: B-CELL LYMPHOMA
     Route: 048
     Dates: start: 20180516, end: 20180606
  17. ZINNAT [Concomitant]
     Active Substance: CEFUROXIME
     Indication: TONSILLITIS
     Route: 048
     Dates: start: 20180529, end: 20180604
  18. TRITACE [Concomitant]
     Active Substance: RAMIPRIL
     Indication: HYPERTENSION
     Route: 048
     Dates: start: 2016, end: 20180527
  19. RANIGAST [Concomitant]
     Indication: GASTROINTESTINAL DISORDER THERAPY
     Route: 065
     Dates: start: 20180817, end: 20180822
  20. FORLAX [Concomitant]
     Active Substance: POLYETHYLENE GLYCOL 4000
     Indication: CONSTIPATION PROPHYLAXIS
     Route: 065
     Dates: start: 20180817, end: 20180822

REACTIONS (3)
  - Subdural haematoma [Recovered/Resolved]
  - Anaemia [Recovered/Resolved]
  - Pneumonia fungal [Recovered/Resolved]

NARRATIVE: CASE EVENT DATE: 20180817
